FAERS Safety Report 8594067-7 (Version None)
Quarter: 2012Q3

REPORT INFORMATION
  Report Type: 
  Country: None (occurrence: None)
  Receive Date: 20120814
  Receipt Date: 20120810
  Transmission Date: 20120928
  Serious: Yes (Hospitalization)
  Sender: FDA-Public Use
  Company Number: BR-ROCHE-1101063

PATIENT
  Sex: Female
  Weight: 62 kg

DRUGS (10)
  1. NEXIUM [Concomitant]
  2. PREDNISONE TAB [Concomitant]
  3. LOVAZA [Concomitant]
  4. VITAMIN [Concomitant]
  5. ARAVA [Concomitant]
  6. OSTEONUTRI [Concomitant]
  7. MABTHERA [Suspect]
     Indication: RHEUMATOID ARTHRITIS
     Route: 042
     Dates: start: 20090601
  8. METHOTREXATE [Concomitant]
  9. OSTEOFORM [Concomitant]
  10. CHLOROQUINE HYDROCHLORIDE [Concomitant]

REACTIONS (3)
  - ARTHROPATHY [None]
  - BONE DISORDER [None]
  - HYPERTENSION [None]
